FAERS Safety Report 9082686 (Version 1)
Quarter: 2013Q1

REPORT INFORMATION
  Report Type: Report from Study
  Country: US (occurrence: US)
  Receive Date: 20130130
  Receipt Date: 20130130
  Transmission Date: 20140127
  Serious: No
  Sender: FDA-Public Use
  Company Number: US-ABBOTT-12P-163-0970926-00

PATIENT
  Age: 46 Year
  Sex: Female

DRUGS (10)
  1. HUMIRA 40 MG/0.8 ML PEN [Suspect]
     Indication: PSORIATIC ARTHROPATHY
     Dates: start: 20120809
  2. LISINOPRIL [Concomitant]
     Indication: HYPERTENSION
     Dosage: 10 MG DAILY
  3. AMLODIPINE [Concomitant]
     Indication: HYPERTENSION
     Dosage: 5 MG DAILY
  4. NORVASC [Concomitant]
     Indication: HYPERTENSION
     Dosage: 10MG DAILY
  5. FLUOXETINE [Concomitant]
     Indication: DEPRESSION
     Dosage: 20MG DAILY
  6. ALPRAZOLAM [Concomitant]
     Indication: ANXIETY
  7. PREDNISONE [Concomitant]
     Indication: PSORIATIC ARTHROPATHY
     Dosage: 5 MG DAILY
  8. METHOTREXATE [Concomitant]
     Indication: PRODUCT USED FOR UNKNOWN INDICATION
     Dosage: 2.5 MG X 8 TABLETS WEEKLY
  9. LORTAB [Concomitant]
     Indication: PRODUCT USED FOR UNKNOWN INDICATION
     Dosage: 10/500 SIX TIMES PER DAY
  10. HYDROMORPHONE [Concomitant]
     Indication: ARTHRALGIA

REACTIONS (3)
  - Fatigue [Recovered/Resolved]
  - Injection site erythema [Recovered/Resolved]
  - Diarrhoea [Recovered/Resolved]
